FAERS Safety Report 6112995-9 (Version None)
Quarter: 2009Q1

REPORT INFORMATION
  Report Type: 
  Country: None (occurrence: None)
  Receive Date: 20090312
  Receipt Date: 20090305
  Transmission Date: 20090719
  Serious: Yes (Congenital Anomaly)
  Sender: FDA-Public Use
  Company Number: A0756640A

PATIENT
  Sex: Male

DRUGS (12)
  1. PAXIL [Suspect]
     Indication: DEPRESSION
     Dosage: 50MG UNKNOWN
  2. PREVACID [Concomitant]
  3. PREDNISONE [Concomitant]
  4. THEOPHYLLINE [Concomitant]
  5. EPHEDRINE [Concomitant]
  6. PRILOSEC [Concomitant]
  7. DEXAMETHASONE [Concomitant]
  8. ATROVENT [Concomitant]
  9. ALBUTEROL [Concomitant]
  10. PULMICORT-100 [Concomitant]
  11. TERBUTALINE SULFATE [Concomitant]
  12. SINGULAIR [Concomitant]

REACTIONS (3)
  - CONGENITAL ANOMALY [None]
  - DRUG EXPOSURE DURING PREGNANCY [None]
  - HYPOPLASTIC LEFT HEART SYNDROME [None]
